FAERS Safety Report 8586749-8 (Version None)
Quarter: 2012Q3

REPORT INFORMATION
  Report Type: 
  Country: None (occurrence: None)
  Receive Date: 20120810
  Receipt Date: 20120730
  Transmission Date: 20120928
  Serious: Yes (Other)
  Sender: FDA-Public Use
  Company Number: JP-FRI-1000023250

PATIENT
  Sex: Male

DRUGS (3)
  1. MEMANTINE HCL [Suspect]
     Dosage: 20 MG
     Route: 048
     Dates: start: 20110819, end: 20110819
  2. MEMANTINE HCL [Suspect]
     Indication: DEMENTIA ALZHEIMER'S TYPE
     Route: 048
     Dates: end: 20110818
  3. ARICEPT [Concomitant]
     Dosage: 10 MG

REACTIONS (3)
  - LIBIDO INCREASED [None]
  - POLLAKIURIA [None]
  - ABNORMAL BEHAVIOUR [None]
